FAERS Safety Report 13588623 (Version 6)
Quarter: 2017Q4

REPORT INFORMATION
  Report Type: Spontaneous
  Country: IT (occurrence: IT)
  Receive Date: 20170529
  Receipt Date: 20171016
  Transmission Date: 20180320
  Serious: Yes (Hospitalization, Other)
  Sender: FDA-Public Use
  Company Number: IT-ROCHE-1940962

PATIENT
  Age: 63 Year
  Sex: Female
  Weight: 65 kg

DRUGS (5)
  1. ZELBORAF [Suspect]
     Active Substance: VEMURAFENIB
     Dosage: 240 MG- BLISTER PACK (AL/AL) 56, FOR 2 MONTHS2
     Route: 048
     Dates: start: 20170314, end: 20170720
  2. COTELLIC [Suspect]
     Active Substance: COBIMETINIB
     Dosage: 20 MG FILM COATED TABLET
     Route: 048
     Dates: end: 20170720
  3. COTELLIC [Suspect]
     Active Substance: COBIMETINIB
     Indication: METASTATIC MALIGNANT MELANOMA
     Dosage: PVC/PVDC BLISTER PACK 63 (3 X 21)?REDUCED DOSE FORM 60 MG TO 40 MG PER DAY DUE TO THE EVENTS
     Route: 048
     Dates: start: 201703
  4. COTELLIC [Suspect]
     Active Substance: COBIMETINIB
     Route: 048
  5. ZELBORAF [Suspect]
     Active Substance: VEMURAFENIB
     Indication: METASTATIC MALIGNANT MELANOMA
     Dosage: 240 MG- BLISTER PACK (AL/AL) 56, FOR 2 MONTHS2
     Route: 048
     Dates: start: 201703

REACTIONS (3)
  - Haemoptysis [Recovered/Resolved]
  - Haemolysis [Recovered/Resolved]
  - Diarrhoea [Recovered/Resolved]

NARRATIVE: CASE EVENT DATE: 20170512
